FAERS Safety Report 10344722 (Version 1)
Quarter: 2014Q3

REPORT INFORMATION
  Report Type: Spontaneous
  Country: NL (occurrence: None)
  Receive Date: 20140724
  Receipt Date: 20140724
  Transmission Date: 20150326
  Serious: Yes (Death, Hospitalization)
  Sender: FDA-Public Use
  Company Number: 2014/051

PATIENT
  Age: 70 Year
  Sex: Female

DRUGS (2)
  1. VENLAFAXINE [Suspect]
     Active Substance: VENLAFAXINE HYDROCHLORIDE
     Indication: AFFECTIVE DISORDER
  2. METHYLENE BLUE. [Suspect]
     Active Substance: METHYLENE BLUE
     Dosage: 9 MG/KG (1 G)
     Route: 042

REACTIONS (19)
  - Brain stem infarction [None]
  - Mental status changes [None]
  - Clonus [None]
  - Psychomotor hyperactivity [None]
  - Circulatory collapse [None]
  - Toxicity to various agents [None]
  - Dysarthria [None]
  - Pyramidal tract syndrome [None]
  - Postictal state [None]
  - Agitation [None]
  - Mydriasis [None]
  - Hyperreflexia [None]
  - Neuroleptic malignant syndrome [None]
  - Haemodynamic instability [None]
  - Hyperhidrosis [None]
  - Salivary hypersecretion [None]
  - Depressed level of consciousness [None]
  - Respiratory failure [None]
  - Opisthotonus [None]
